FAERS Safety Report 18765712 (Version 1)
Quarter: 2021Q1

REPORT INFORMATION
  Report Type: Spontaneous
  Country: FR (occurrence: FR)
  Receive Date: 20210120
  Receipt Date: 20210120
  Transmission Date: 20210419
  Serious: Yes (Hospitalization, Other)
  Sender: FDA-Public Use
  Company Number: FR-ANIPHARMA-2021-FR-000014

PATIENT
  Sex: Female

DRUGS (7)
  1. ATACAND [Suspect]
     Active Substance: CANDESARTAN CILEXETIL
     Indication: PRODUCT USED FOR UNKNOWN INDICATION
     Dosage: UNKNOWN DOSE AND FREQUENCY
     Route: 048
  2. COVERAM [Suspect]
     Active Substance: AMLODIPINE\PERINDOPRIL
     Dosage: 1 DF DAILY
     Route: 048
     Dates: start: 2005
  3. LERCAN [Suspect]
     Active Substance: LERCANIDIPINE
     Dosage: UNKNOWN DOSE AND FREQUENCY
     Route: 065
  4. CANDESARTAN CILEXETIL AND HYDROCHLOROTHIAZIDE [Suspect]
     Active Substance: CANDESARTAN CILEXETIL\HYDROCHLOROTHIAZIDE
     Indication: PRODUCT USED FOR UNKNOWN INDICATION
     Dosage: UNKNOWN DOSE AND FREQUENCY
     Route: 048
  5. BIPRETERAX [Suspect]
     Active Substance: INDAPAMIDE\PERINDOPRIL
     Dosage: 5/1.25 MG, UNKNOWN DOSE AND FREQUENCY
  6. PHYSIOTENS [Suspect]
     Active Substance: MOXONIDINE
     Dosage: UNKNOWN DOSE AND FREQUENCY
     Route: 065
  7. ATENOLOL. [Concomitant]
     Active Substance: ATENOLOL
     Dosage: 25 MG DAILY / DOSE: 25 MG DAILY / DOSE: 50 MG DAILY
     Route: 065

REACTIONS (5)
  - Oedema peripheral [Recovered/Resolved]
  - Face oedema [Recovered/Resolved]
  - Localised oedema [Recovering/Resolving]
  - Bradycardia [Unknown]
  - Arthralgia [Not Recovered/Not Resolved]
